FAERS Safety Report 17073533 (Version 2)
Quarter: 2021Q2

REPORT INFORMATION
  Report Type: Spontaneous
  Country: DE (occurrence: DE)
  Receive Date: 20191126
  Receipt Date: 20210605
  Transmission Date: 20210716
  Serious: Yes (Hospitalization)
  Sender: FDA-Public Use
  Company Number: DE-AUROBINDO-AUR-APL-2019-074757

PATIENT
  Age: 56 Year
  Sex: Male
  Weight: 117 kg

DRUGS (77)
  1. FOLINIC ACID [Suspect]
     Active Substance: LEUCOVORIN
     Indication: COLORECTAL CANCER METASTATIC
     Dosage: 920 MILLIGRAM
     Route: 065
     Dates: start: 20181119
  2. FOLINIC ACID [Suspect]
     Active Substance: LEUCOVORIN
     Dosage: 930 MILLIGRAM
     Route: 065
     Dates: start: 20200113
  3. FOLINIC ACID [Suspect]
     Active Substance: LEUCOVORIN
     Dosage: 925 MILLIGRAM
     Route: 065
     Dates: start: 20200127
  4. FLUOROURACIL. [Suspect]
     Active Substance: FLUOROURACIL
     Dosage: 925 MILLIGRAM
     Route: 040
     Dates: start: 20190527
  5. FLUOROURACIL. [Suspect]
     Active Substance: FLUOROURACIL
     Dosage: 925 MILLIGRAM
     Route: 040
     Dates: start: 20191216
  6. FLUOROURACIL. [Suspect]
     Active Substance: FLUOROURACIL
     Dosage: 5600 MILLIGRAM
     Route: 042
     Dates: start: 20190401
  7. FLUOROURACIL. [Suspect]
     Active Substance: FLUOROURACIL
     Dosage: 5500 MILLIGRAM
     Route: 042
     Dates: start: 20190527
  8. FLUOROURACIL. [Suspect]
     Active Substance: FLUOROURACIL
     Dosage: 5500 MILLIGRAM
     Route: 042
     Dates: start: 20191216
  9. VECTIBIX [Suspect]
     Active Substance: PANITUMUMAB
     Dosage: 700 MILLIGRAM
     Route: 042
     Dates: start: 20190401
  10. VECTIBIX [Suspect]
     Active Substance: PANITUMUMAB
     Dosage: 470 MILLIGRAM
     Route: 042
     Dates: start: 20190701
  11. VECTIBIX [Suspect]
     Active Substance: PANITUMUMAB
     Dosage: 480 MILLIGRAM
     Route: 042
     Dates: start: 20190930
  12. DOXYCYCLIN [Concomitant]
     Active Substance: DOXYCYCLINE
     Indication: RASH
     Dosage: 100 MILLIGRAM, BID
     Route: 048
     Dates: start: 20190315
  13. METFORMIN [Concomitant]
     Active Substance: METFORMIN HYDROCHLORIDE
     Indication: DIABETES MELLITUS
     Dosage: 50?1000 MILLIGRAM, BID
     Route: 065
  14. VELMETIA [Concomitant]
     Active Substance: METFORMIN\SITAGLIPTIN
     Indication: DIABETES MELLITUS
     Dosage: 1000 MILLIGRAM, QD, BID
     Route: 048
     Dates: start: 20120615
  15. FOLINIC ACID [Suspect]
     Active Substance: LEUCOVORIN
     Dosage: 890 MILLIGRAM
     Route: 065
     Dates: start: 20191202
  16. FLUOROURACIL. [Suspect]
     Active Substance: FLUOROURACIL
     Dosage: 900 MILLIGRAM
     Route: 040
     Dates: start: 20190429
  17. FLUOROURACIL. [Suspect]
     Active Substance: FLUOROURACIL
     Indication: COLORECTAL CANCER METASTATIC
     Dosage: 5500 MILLIGRAM
     Route: 042
     Dates: start: 20181119
  18. FLUOROURACIL. [Suspect]
     Active Substance: FLUOROURACIL
     Dosage: 5400 MILLIGRAM
     Route: 042
     Dates: start: 20191014
  19. FLUOROURACIL. [Suspect]
     Active Substance: FLUOROURACIL
     Dosage: 925 MILLIGRAM
     Route: 042
     Dates: start: 20191230
  20. FLUOROURACIL. [Suspect]
     Active Substance: FLUOROURACIL
     Dosage: 5350 MILLIGRAM
     Route: 042
     Dates: start: 20191202
  21. ERYTHROMYCIN. [Concomitant]
     Active Substance: ERYTHROMYCIN
     Indication: PROPHYLAXIS
     Dosage: 1 UNK, AS NECESSARY
     Route: 061
     Dates: start: 20190306
  22. ALLOPURINOL RATIOPHARM [Concomitant]
     Active Substance: ALLOPURINOL
     Indication: BLOOD URIC ACID INCREASED
     Dosage: 150 MILLIGRAM, ONCE A DAY
     Route: 048
     Dates: start: 19980615
  23. CELESTAN [Concomitant]
     Active Substance: BETAMETHASONE
     Indication: PROPHYLAXIS
     Dosage: 100 MILLIGRAM, AS NECESSARY
     Route: 061
     Dates: start: 20190304
  24. FOLINIC ACID [Suspect]
     Active Substance: LEUCOVORIN
     Dosage: 920 MILLIGRAM
     Route: 065
     Dates: start: 20190701
  25. FOLINIC ACID [Suspect]
     Active Substance: LEUCOVORIN
     Dosage: 920 MILLIGRAM
     Route: 065
     Dates: start: 20191216
  26. FLUOROURACIL. [Suspect]
     Active Substance: FLUOROURACIL
     Dosage: 700 MILLIGRAM
     Route: 040
     Dates: start: 20190320
  27. FLUOROURACIL. [Suspect]
     Active Substance: FLUOROURACIL
     Dosage: 925 MILLIGRAM
     Route: 040
     Dates: start: 20190401
  28. FLUOROURACIL. [Suspect]
     Active Substance: FLUOROURACIL
     Dosage: 5450 MILLIGRAM
     Route: 042
     Dates: start: 20190429
  29. VECTIBIX [Suspect]
     Active Substance: PANITUMUMAB
     Dosage: 640 MILLIGRAM
     Route: 042
     Dates: start: 20190513
  30. VECTIBIX [Suspect]
     Active Substance: PANITUMUMAB
     Dosage: 440 MILLIGRAM
     Route: 042
     Dates: start: 20191014
  31. LIQUIFILM [Concomitant]
     Indication: PROPHYLAXIS
     Dosage: 1 UNK, AS NECESSARY
     Route: 061
     Dates: start: 20181214
  32. BETAGALEN [Concomitant]
     Indication: RASH
     Dosage: 0.1 UNK, AS NECESSARY
     Route: 061
     Dates: start: 20190527
  33. ERYTHROMYCIN. [Concomitant]
     Active Substance: ERYTHROMYCIN
     Indication: RASH
     Dosage: 1 UNK, AS NECESSARY
     Route: 061
     Dates: start: 20181214
  34. POLYSORBATE 20. [Concomitant]
     Active Substance: POLYSORBATE 20
     Indication: RASH
     Dosage: 1 UNK, AS NECESSARY
     Route: 061
     Dates: start: 20190328
  35. FORTIMEL [Concomitant]
     Active Substance: DIETARY SUPPLEMENT
     Indication: PROPHYLAXIS
     Dosage: 1 UNK, TID
     Route: 048
     Dates: start: 20191014
  36. METRONIDAZOLE SODIUM [Concomitant]
     Active Substance: METRONIDAZOLE SODIUM
     Indication: SKIN DISORDER PROPHYLAXIS
     Dosage: 1 MILLIGRAM, AS NECESSARY
     Route: 061
     Dates: start: 20190218
  37. FOLINIC ACID [Suspect]
     Active Substance: LEUCOVORIN
     Dosage: 195 MILLIGRAM
     Route: 065
     Dates: start: 20181203
  38. OXALIPLATIN. [Suspect]
     Active Substance: OXALIPLATIN
     Indication: COLORECTAL CANCER METASTATIC
     Dosage: 195 MILLIGRAM
     Route: 065
     Dates: start: 20181119
  39. OXALIPLATIN. [Suspect]
     Active Substance: OXALIPLATIN
     Dosage: 150 MILLIGRAM
     Route: 065
     Dates: start: 20190320
  40. FLUOROURACIL. [Suspect]
     Active Substance: FLUOROURACIL
     Dosage: 925 MILLIGRAM
     Route: 040
     Dates: start: 20190916
  41. FLUOROURACIL. [Suspect]
     Active Substance: FLUOROURACIL
     Dosage: 4300 MILLIGRAM
     Route: 042
     Dates: start: 20190320
  42. VECTIBIX [Suspect]
     Active Substance: PANITUMUMAB
     Dosage: 490 MILLIGRAM
     Route: 042
     Dates: start: 20190916
  43. AMLODIPIN RATIOPHARM [Concomitant]
     Active Substance: AMLODIPINE MALEATE
     Indication: HYPERTENSION
     Dosage: 5 MILLIGRAM, ONCE A DAY
     Route: 048
     Dates: start: 20100615, end: 20190420
  44. LANTUS [Concomitant]
     Active Substance: INSULIN GLARGINE
     Indication: DIABETES MELLITUS
     Dosage: 6 UNK, QD
     Route: 058
     Dates: start: 20190115
  45. OXALIPLATIN. [Suspect]
     Active Substance: OXALIPLATIN
     Dosage: 195 MILLIGRAM
     Route: 065
     Dates: start: 20190401
  46. FLUOROURACIL. [Suspect]
     Active Substance: FLUOROURACIL
     Indication: COLORECTAL CANCER METASTATIC
     Dosage: 925 MILLIGRAM
     Route: 040
     Dates: start: 20181119
  47. FLUOROURACIL. [Suspect]
     Active Substance: FLUOROURACIL
     Dosage: 5500 MILLIGRAM
     Route: 040
     Dates: start: 20190902
  48. VECTIBIX [Suspect]
     Active Substance: PANITUMUMAB
     Dosage: 460 MILLIGRAM
     Route: 042
     Dates: start: 20190527
  49. VECTIBIX [Suspect]
     Active Substance: PANITUMUMAB
     Dosage: 480 MILLIGRAM
     Route: 042
     Dates: start: 20190902
  50. RAMILICH [Concomitant]
     Active Substance: RAMIPRIL
     Indication: HYPERTENSION
     Dosage: 5 MILLIGRAM, ONCE A DAY
     Route: 048
     Dates: start: 20100615, end: 20190420
  51. CLINDAMYCIN RATIOPHARM [Concomitant]
     Active Substance: CLINDAMYCIN PHOSPHATE
     Indication: PROPHYLAXIS
     Dosage: 1800 MILLIGRAM, ONCE A DAY
     Route: 048
     Dates: start: 20181119
  52. GRANISETRON B. BRAUN [Concomitant]
     Active Substance: GRANISETRON HYDROCHLORIDE
     Indication: PROPHYLACTIC CHEMOTHERAPY
     Dosage: 1 MILLIGRAM, CYCLICAL
     Route: 042
     Dates: start: 20181022
  53. FOLINIC ACID [Suspect]
     Active Substance: LEUCOVORIN
     Dosage: 920 MILLIGRAM
     Route: 065
     Dates: start: 20181217
  54. FOLINIC ACID [Suspect]
     Active Substance: LEUCOVORIN
     Dosage: 700 MILLIGRAM
     Route: 065
     Dates: start: 20190320
  55. FOLINIC ACID [Suspect]
     Active Substance: LEUCOVORIN
     Dosage: 900 MILLIGRAM
     Route: 065
     Dates: start: 20190429
  56. FOLINIC ACID [Suspect]
     Active Substance: LEUCOVORIN
     Dosage: 920 MILLIGRAM
     Route: 065
     Dates: start: 20190527
  57. FOLINIC ACID [Suspect]
     Active Substance: LEUCOVORIN
     Dosage: 900 MILLIGRAM
     Route: 065
     Dates: start: 20191014
  58. VECTIBIX [Suspect]
     Active Substance: PANITUMUMAB
     Dosage: 500 MILLIGRAM
     Route: 042
     Dates: start: 20190819
  59. HYALURONATE SODIUM [Concomitant]
     Active Substance: HYALURONATE SODIUM
     Indication: EYE DISORDER PROPHYLAXIS
     Dosage: 1 UNK, BID
     Route: 061
     Dates: start: 20190729
  60. ALLOPURINOL RATIOPHARM [Concomitant]
     Active Substance: ALLOPURINOL
     Indication: PROPHYLAXIS
  61. GRANISETRON ACTAVIS [Concomitant]
     Indication: PROPHYLACTIC CHEMOTHERAPY
     Dosage: 1?2 MILLIGRAM CYCLICAL
     Route: 048
     Dates: start: 20181022
  62. METRONIDAZOLE. [Concomitant]
     Active Substance: METRONIDAZOLE
     Indication: RASH
     Dosage: 1 UNK, AS NECESSARY
     Route: 061
     Dates: start: 20190328
  63. OXALIPLATIN. [Suspect]
     Active Substance: OXALIPLATIN
     Dosage: 190 MILLIGRAM
     Route: 065
     Dates: start: 20190429
  64. FLUOROURACIL. [Suspect]
     Active Substance: FLUOROURACIL
     Dosage: 900 MILLIGRAM
     Route: 040
     Dates: start: 20191014
  65. VECTIBIX [Suspect]
     Active Substance: PANITUMUMAB
     Indication: COLORECTAL CANCER METASTATIC
     Dosage: 700 MILLIGRAM
     Route: 042
     Dates: start: 20181119
  66. RAMILICH [Concomitant]
     Active Substance: RAMIPRIL
     Indication: PROPHYLAXIS
     Dosage: UNK
     Route: 065
  67. CALCIUM D3 [Concomitant]
     Active Substance: CALCIUM\CHOLECALCIFEROL
     Indication: PROPHYLAXIS
     Dosage: 1000 MILLIGRAM, ONCE A DAY (500 MILLIGRAM, BID)
     Route: 048
     Dates: start: 20190418
  68. AMLODIPIN RATIOPHARM [Concomitant]
     Active Substance: AMLODIPINE MALEATE
     Indication: PROPHYLAXIS
     Dosage: UNK
     Route: 065
  69. DOXYCYCLIN RATIOPHARM [Concomitant]
     Indication: PROPHYLAXIS
     Dosage: 200 MILLIGRAM, ONCE A DAY (100 MILLIGRAM, BID)
     Route: 048
     Dates: start: 20181214
  70. DEXAMETHASON JENAPHARM [Concomitant]
     Active Substance: DEXAMETHASONE
     Indication: PROPHYLACTIC CHEMOTHERAPY
     Dosage: 4?8 MILLIGRAM, CYCLICAL
     Route: 065
     Dates: start: 20181022
  71. FOLINIC ACID [Suspect]
     Active Substance: LEUCOVORIN
     Dosage: 930 MILLIGRAM
     Route: 065
     Dates: start: 20190401
  72. FOLINIC ACID [Suspect]
     Active Substance: LEUCOVORIN
     Dosage: 930 MILLIGRAM
     Route: 065
     Dates: start: 20190617
  73. FLUOROURACIL. [Suspect]
     Active Substance: FLUOROURACIL
     Dosage: 890 MILLIGRAM
     Route: 040
     Dates: start: 20191202
  74. FLUOROURACIL. [Suspect]
     Active Substance: FLUOROURACIL
     Dosage: 925 MILLIGRAM
     Route: 042
     Dates: start: 20190902
  75. FLUOROURACIL. [Suspect]
     Active Substance: FLUOROURACIL
     Dosage: 5500 MILLIGRAM
     Route: 042
     Dates: start: 20190916
  76. VECTIBIX [Suspect]
     Active Substance: PANITUMUMAB
     Dosage: 370 MILLIGRAM
     Route: 042
     Dates: start: 20190320
  77. BETAMETHASONE. [Suspect]
     Active Substance: BETAMETHASONE
     Indication: PROPHYLAXIS
     Dosage: 100 MILLIGRAM AS NECESSARY
     Route: 061
     Dates: start: 20190304

REACTIONS (1)
  - Functional gastrointestinal disorder [Recovering/Resolving]

NARRATIVE: CASE EVENT DATE: 20191022
